FAERS Safety Report 4818612-X (Version None)
Quarter: 2005Q4

REPORT INFORMATION
  Report Type: 
  Country: None (occurrence: None)
  Receive Date: 20051101
  Receipt Date: 20051024
  Transmission Date: 20060501
  Serious: Yes (Hospitalization, Other)
  Sender: FDA-Public Use
  Company Number: 2005041769

PATIENT
  Sex: Female

DRUGS (1)
  1. NEURONTIN [Suspect]
     Indication: ILL-DEFINED DISORDER

REACTIONS (5)
  - CARDIAC VALVE DISEASE [None]
  - DIZZINESS [None]
  - MALAISE [None]
  - PAIN IN EXTREMITY [None]
  - PERSONALITY DISORDER [None]
